FAERS Safety Report 12958930 (Version 2)
Quarter: 2016Q4

REPORT INFORMATION
  Report Type: Spontaneous
  Country: NO (occurrence: NO)
  Receive Date: 20161121
  Receipt Date: 20161122
  Transmission Date: 20170207
  Serious: Yes (Hospitalization, Other)
  Sender: FDA-Public Use
  Company Number: NO-SUN PHARMACEUTICAL INDUSTRIES LTD-2016RR-122796

PATIENT
  Age: 55 Year
  Sex: Male

DRUGS (12)
  1. OXALIPLATIN 5 MG/ML CONCENTRATE FOR SOLUTION FOR INFUSION [Suspect]
     Active Substance: OXALIPLATIN
     Dosage: 153 MG, UNK
     Route: 042
     Dates: start: 20160704
  2. FLUOROBLASTIN [Suspect]
     Active Substance: FLUOROURACIL
     Indication: RECTAL CANCER
     Dosage: 900 MG, UNK
     Route: 042
     Dates: start: 20160802
  3. FLUOROBLASTIN [Suspect]
     Active Substance: FLUOROURACIL
     Dosage: 900 MG, UNK
     Route: 042
     Dates: start: 20160705
  4. ONDANSETRON [Concomitant]
     Active Substance: ONDANSETRON
     Indication: PREMEDICATION
     Dosage: 8 MG, UNK
     Route: 065
  5. KLEXANE [Concomitant]
     Active Substance: ENOXAPARIN
     Indication: DEEP VEIN THROMBOSIS
     Dosage: 60 MG, UNK
     Route: 058
  6. OXALIPLATIN 5 MG/ML CONCENTRATE FOR SOLUTION FOR INFUSION [Suspect]
     Active Substance: OXALIPLATIN
     Dosage: 153 MG
     Route: 042
     Dates: start: 20160705
  7. CALCIUM FOLINAT [Suspect]
     Active Substance: LEUCOVORIN CALCIUM
     Indication: RECTAL CANCER
     Dosage: 100 MG, UNK
     Route: 042
     Dates: start: 20160802
  8. EMEND [Concomitant]
     Active Substance: APREPITANT
     Indication: PROPHYLAXIS OF NAUSEA AND VOMITING
     Dosage: 125 MG, UNK
     Route: 065
  9. OXALIPLATIN 5 MG/ML CONCENTRATE FOR SOLUTION FOR INFUSION [Suspect]
     Active Substance: OXALIPLATIN
     Indication: RECTAL CANCER
     Dosage: 153 MG, UNK
     Route: 042
     Dates: start: 20160802
  10. CALCIUM FOLINAT [Suspect]
     Active Substance: LEUCOVORIN CALCIUM
     Indication: RECTAL CANCER
     Dosage: 100 MG, UNK
     Route: 065
     Dates: start: 20160705
  11. CALCIUM FOLINAT [Suspect]
     Active Substance: LEUCOVORIN CALCIUM
     Dosage: 100 MG, UNK
     Route: 042
     Dates: start: 20160704
  12. DEXAMETHASONE. [Concomitant]
     Active Substance: DEXAMETHASONE
     Indication: PREMEDICATION
     Dosage: 16 MG, UNK
     Route: 048

REACTIONS (4)
  - Restlessness [Unknown]
  - Nausea [Recovered/Resolved]
  - Abdominal pain upper [Recovered/Resolved]
  - Cold sweat [Recovered/Resolved]

NARRATIVE: CASE EVENT DATE: 20160802
